FAERS Safety Report 7762086-6 (Version None)
Quarter: 2011Q3

REPORT INFORMATION
  Report Type: 
  Country: None (occurrence: None)
  Receive Date: 20110920
  Receipt Date: 20110920
  Transmission Date: 20111222
  Serious: Yes (Other)
  Sender: FDA-Public Use
  Company Number: None

PATIENT
  Age: 53 Year
  Sex: Female
  Weight: 68.038 kg

DRUGS (1)
  1. ZICAM LOZENGES (OTC) [Suspect]
     Indication: NASOPHARYNGITIS
     Dosage: 1 LOZENGE
     Route: 048

REACTIONS (2)
  - ANOSMIA [None]
  - DYSGEUSIA [None]
